FAERS Safety Report 6748708-7 (Version None)
Quarter: 2010Q2

REPORT INFORMATION
  Report Type: 
  Country: None (occurrence: None)
  Receive Date: 20100601
  Receipt Date: 20100517
  Transmission Date: 20101027
  Serious: Yes (Other)
  Sender: FDA-Public Use
  Company Number: PHHY2010US30713

PATIENT
  Sex: Female

DRUGS (5)
  1. GENTEAL MODERATE LUBRICANT EYE DROPS (NVO) [Suspect]
     Indication: DRY EYE
     Dosage: UNK, UPTO FOUR TIMES A DAY
     Route: 047
     Dates: start: 20100506
  2. OLAY [Suspect]
     Dosage: UNK,UNK
  3. SYSTANE (PROPYLENE GLYCOL/MACROGOL) [Concomitant]
     Dosage: UNK
     Route: 061
     Dates: start: 20080801
  4. NEOPOLYDEXA [Concomitant]
     Indication: CONJUNCTIVAL HYPERAEMIA
     Dosage: OFF AND ON
     Route: 061
     Dates: start: 20080218, end: 20090518
  5. FML [Concomitant]
     Indication: OCULAR HYPERAEMIA
     Dosage: OFF AND ON
     Route: 061
     Dates: start: 20090518

REACTIONS (9)
  - ACTIVITIES OF DAILY LIVING IMPAIRED [None]
  - BLINDNESS TRANSIENT [None]
  - DRY EYE [None]
  - ERYTHEMA [None]
  - EYE SWELLING [None]
  - OCULAR HYPERAEMIA [None]
  - PRURITUS [None]
  - SKIN WRINKLING [None]
  - SWELLING FACE [None]
